FAERS Safety Report 24038761 (Version 2)
Quarter: 2024Q3

REPORT INFORMATION
  Report Type: Spontaneous
  Country: FR (occurrence: FR)
  Receive Date: 20240702
  Receipt Date: 20240729
  Transmission Date: 20241016
  Serious: Yes (Other)
  Sender: SANOFI AVENTIS
  Company Number: None

PATIENT
  Age: 49 Year
  Sex: Male
  Weight: 82 kg

DRUGS (3)
  1. DUPIXENT [Suspect]
     Active Substance: DUPILUMAB
     Indication: Nasal polyps
     Dosage: 1 DF, Q15D
     Route: 058
     Dates: start: 20240208
  2. NASONEX [Concomitant]
     Active Substance: MOMETASONE FUROATE
  3. AERIUS (DESLORATADINE) [Concomitant]
     Active Substance: DESLORATADINE

REACTIONS (2)
  - Psoriasis [Not Recovered/Not Resolved]
  - Dry skin [Not Recovered/Not Resolved]

NARRATIVE: CASE EVENT DATE: 20240312
